FAERS Safety Report 16315709 (Version 5)
Quarter: 2019Q3

REPORT INFORMATION
  Report Type: Spontaneous
  Country: CH (occurrence: CH)
  Receive Date: 20190515
  Receipt Date: 20190718
  Transmission Date: 20191004
  Serious: Yes (Other)
  Sender: FDA-Public Use
  Company Number: PHHY2019CH105969

PATIENT
  Sex: Female

DRUGS (2)
  1. BILOL [Suspect]
     Active Substance: BISOPROLOL
     Indication: CARDIOMYOPATHY
     Dosage: 0.5 DF, UNK
     Route: 065
     Dates: start: 20190426
  2. SOLIDAGO CERES [Concomitant]
     Indication: RENAL IMPAIRMENT
     Dosage: UNK UKN, UNK
     Route: 065

REACTIONS (6)
  - Abdominal pain [Not Recovered/Not Resolved]
  - Abdominal pain upper [Not Recovered/Not Resolved]
  - Product administration error [Unknown]
  - Dry mouth [Not Recovered/Not Resolved]
  - Eyelid function disorder [Recovering/Resolving]
  - Vomiting [Not Recovered/Not Resolved]

NARRATIVE: CASE EVENT DATE: 20190427
